FAERS Safety Report 15053756 (Version 1)
Quarter: 2018Q2

REPORT INFORMATION
  Report Type: Report from Study
  Country: US (occurrence: US)
  Receive Date: 20180622
  Receipt Date: 20180622
  Transmission Date: 20180711
  Serious: No
  Sender: FDA-Public Use
  Company Number: US-AMGEN-USASL2016012663

PATIENT
  Age: 53 Year
  Sex: Male
  Weight: 102.4 kg

DRUGS (1)
  1. NPLATE [Suspect]
     Active Substance: ROMIPLOSTIM
     Indication: IMMUNE THROMBOCYTOPENIC PURPURA
     Dosage: 250 MCG, QWK
     Route: 058
     Dates: start: 20150924

REACTIONS (5)
  - Platelet count abnormal [Unknown]
  - Papule [Unknown]
  - Inappropriate schedule of drug administration [Unknown]
  - Arthritis [Not Recovered/Not Resolved]
  - Increased tendency to bruise [Unknown]
